FAERS Safety Report 23509198 (Version 1)
Quarter: 2024Q1

REPORT INFORMATION
  Report Type: Spontaneous
  Country: US (occurrence: None)
  Receive Date: 20240209
  Receipt Date: 20240209
  Transmission Date: 20240410
  Serious: Yes (Hospitalization)
  Sender: FDA-Public Use
  Company Number: None

PATIENT
  Age: 18 Year
  Sex: Female
  Weight: 44.9 kg

DRUGS (2)
  1. RETIFANLIMAB [Suspect]
     Active Substance: RETIFANLIMAB
     Indication: Malignant cranial nerve neoplasm
  2. RETIFANLIMAB [Suspect]
     Active Substance: RETIFANLIMAB
     Indication: Malignant nervous system neoplasm

REACTIONS (5)
  - Psychomotor hyperactivity [None]
  - Pyrexia [None]
  - Anaemia [None]
  - Neutrophil count decreased [None]
  - Sinus tachycardia [None]

NARRATIVE: CASE EVENT DATE: 20240206
